FAERS Safety Report 7481694-3 (Version None)
Quarter: 2011Q2

REPORT INFORMATION
  Report Type: 
  Country: None (occurrence: None)
  Receive Date: 20110516
  Receipt Date: 20110504
  Transmission Date: 20111010
  Serious: Yes (Hospitalization, Other)
  Sender: FDA-Public Use
  Company Number: US-TYCO HEALTHCARE/MALLINCKRODT-T201100738

PATIENT
  Age: 31 Week
  Weight: 1.224 kg

DRUGS (3)
  1. OXYCODONE HCL [Suspect]
     Dosage: UNK
     Route: 064
  2. MORPHINE [Suspect]
     Dosage: UNK
     Route: 064
  3. HYDROMORPHONE HCL [Suspect]
     Dosage: UNK
     Route: 064

REACTIONS (3)
  - PREMATURE BABY [None]
  - DRUG EXPOSURE DURING PREGNANCY [None]
  - DRUG WITHDRAWAL SYNDROME NEONATAL [None]
